FAERS Safety Report 8538625-4 (Version None)
Quarter: 2012Q3

REPORT INFORMATION
  Report Type: 
  Country: None (occurrence: None)
  Receive Date: 20120718
  Receipt Date: 20120718
  Transmission Date: 20120928
  Serious: Yes (Death)
  Sender: FDA-Public Use
  Company Number: None

PATIENT
  Age: 55 Year
  Sex: Female
  Weight: 72.6 kg

DRUGS (2)
  1. HEPARIN [Suspect]
     Indication: CARDIAC DISORDER
     Dosage: 4000 UNITS BOLUS IVP 800 UNITS/HR INTRAVENOUS
     Route: 042
     Dates: start: 20080215
  2. HEPARIN [Suspect]
     Dosage: 25,000U/500ML 800 UNITS/HR IV DRIP
     Route: 041
     Dates: start: 20080216

REACTIONS (4)
  - CARDIAC ARREST [None]
  - RESPIRATORY FAILURE [None]
  - HYPOTENSION [None]
  - CARDIOGENIC SHOCK [None]
